FAERS Safety Report 5246870-9 (Version None)
Quarter: 2007Q1

REPORT INFORMATION
  Report Type: 
  Country: None (occurrence: None)
  Receive Date: 20070226
  Receipt Date: 20070214
  Transmission Date: 20070707
  Serious: Yes (Other)
  Sender: FDA-Public Use
  Company Number: US-PFIZER INC-2007012874

PATIENT
  Age: 30 Year
  Sex: Male

DRUGS (2)
  1. SERTRALINE [Suspect]
     Indication: DEPRESSION
     Dosage: DAILY DOSE:50MG
  2. SERTRALINE [Suspect]
     Indication: INSOMNIA

REACTIONS (6)
  - EJACULATION FAILURE [None]
  - ERECTILE DYSFUNCTION [None]
  - HYPOAESTHESIA [None]
  - LIBIDO DECREASED [None]
  - MALE ORGASMIC DISORDER [None]
  - SEXUAL DYSFUNCTION [None]
